FAERS Safety Report 6826197-1 (Version None)
Quarter: 2010Q3

REPORT INFORMATION
  Report Type: 
  Country: None (occurrence: None)
  Receive Date: 20100708
  Receipt Date: 20100708
  Transmission Date: 20110219
  Serious: No
  Sender: FDA-Public Use
  Company Number: None

PATIENT
  Sex: Female
  Weight: 108.6 kg

DRUGS (1)
  1. ZOMETA [Suspect]
     Dosage: 28 MG
     Dates: end: 20090413

REACTIONS (5)
  - GLOSSITIS [None]
  - GLOSSODYNIA [None]
  - IMPAIRED HEALING [None]
  - OSTEONECROSIS OF JAW [None]
  - TONGUE DISORDER [None]
